FAERS Safety Report 9098532 (Version 1)
Quarter: 2013Q1

REPORT INFORMATION
  Report Type: Spontaneous
  Country: US (occurrence: US)
  Receive Date: 20130213
  Receipt Date: 20130213
  Transmission Date: 20140127
  Serious: Yes (Death)
  Sender: FDA-Public Use
  Company Number: US-ELI_LILLY_AND_COMPANY-US201302001792

PATIENT
  Age: 63 Year
  Sex: Female

DRUGS (7)
  1. OLANZAPINE [Suspect]
  2. AMLODIPINE [Concomitant]
  3. METOPROLOL [Concomitant]
  4. RISPERIDONE [Concomitant]
  5. VALPROIC ACID [Concomitant]
  6. LISINOPRIL [Concomitant]
  7. ACETAMINOPHEN W/HYDROCODONE [Concomitant]

REACTIONS (1)
  - Completed suicide [Fatal]
